FAERS Safety Report 5291678-1 (Version None)
Quarter: 2007Q2

REPORT INFORMATION
  Report Type: 
  Country: None (occurrence: None)
  Receive Date: 20070410
  Receipt Date: 20070329
  Transmission Date: 20071010
  Serious: Yes (Hospitalization)
  Sender: FDA-Public Use
  Company Number: PHRM2007FR01159

PATIENT
  Age: 81 Year
  Sex: Female

DRUGS (8)
  1. TRIVASTAL [Concomitant]
     Indication: PARKINSONISM
     Dosage: 50 MG, BID
     Route: 048
  2. MODOPAR [Concomitant]
     Indication: PARKINSONISM
     Dosage: 125 MG, QID
     Route: 048
     Dates: end: 20070207
  3. MODOPAR [Concomitant]
     Dosage: 250 MG, 5QD
     Route: 048
     Dates: start: 20070208
  4. REQUIP [Concomitant]
     Indication: PARKINSONISM
  5. COTAREG [Suspect]
     Indication: HYPERTENSION
     Dosage: 1 DF, QD
     Route: 048
     Dates: start: 20070204
  6. TRIMETAZIDINE [Suspect]
     Indication: DEMENTIA
     Route: 048
     Dates: start: 20061215, end: 20070204
  7. ZOLOFT [Suspect]
     Indication: DEMENTIA
     Dosage: 25 MG, QD
     Route: 048
     Dates: end: 20070204
  8. NISISCO [Suspect]
     Indication: HYPERTENSION
     Dosage: 1 DF, QD
     Route: 048
     Dates: end: 20070204

REACTIONS (6)
  - ABNORMAL BEHAVIOUR [None]
  - AGGRESSION [None]
  - CONVERSION DISORDER [None]
  - DEMENTIA [None]
  - DISORIENTATION [None]
  - HALLUCINATION [None]
